APPROVED DRUG PRODUCT: NAPROXEN AND ESOMEPRAZOLE MAGNESIUM
Active Ingredient: ESOMEPRAZOLE MAGNESIUM; NAPROXEN
Strength: EQ 20MG BASE;500MG
Dosage Form/Route: TABLET, DELAYED RELEASE;ORAL
Application: A204470 | Product #002
Applicant: ACTAVIS LABORATORIES FL INC
Approved: Aug 24, 2022 | RLD: No | RS: No | Type: DISCN